FAERS Safety Report 19020152 (Version 1)
Quarter: 2021Q1

REPORT INFORMATION
  Report Type: Spontaneous
  Country: US (occurrence: US)
  Receive Date: 20210317
  Receipt Date: 20210317
  Transmission Date: 20210420
  Serious: Yes (Other)
  Sender: FDA-Public Use
  Company Number: None

PATIENT
  Age: 51 Year
  Sex: Female
  Weight: 93.89 kg

DRUGS (2)
  1. JAKAFI [Suspect]
     Active Substance: RUXOLITINIB
  2. ARMODAFINIL. [Suspect]
     Active Substance: ARMODAFINIL

REACTIONS (2)
  - Anxiety [None]
  - Migraine [None]

NARRATIVE: CASE EVENT DATE: 20210317
